FAERS Safety Report 15316052 (Version 1)
Quarter: 2018Q3

REPORT INFORMATION
  Report Type: Spontaneous
  Country: US (occurrence: US)
  Receive Date: 20180824
  Receipt Date: 20180824
  Transmission Date: 20181010
  Serious: Yes (Hospitalization, Other)
  Sender: FDA-Public Use
  Company Number: US-ASTELLAS-2018US037345

PATIENT
  Age: 38 Year
  Sex: Male

DRUGS (4)
  1. AZATHIOPRINE. [Suspect]
     Active Substance: AZATHIOPRINE
     Indication: ORGAN TRANSPLANT
     Dosage: UNK, UNKNOWN FREQ. (REDUCED)
     Route: 065
  2. AZATHIOPRINE. [Suspect]
     Active Substance: AZATHIOPRINE
     Dosage: UNK, UNKNOWN FREQ.
     Route: 065
  3. TACROLIMUS. [Suspect]
     Active Substance: TACROLIMUS
     Dosage: ADJUSTED TO MAINTAIN 12? HOUR TROUGH LEVEL OF 5? 10 NG/ML, UNKNOWN FREQ.
     Route: 065
  4. TACROLIMUS. [Suspect]
     Active Substance: TACROLIMUS
     Indication: ORGAN TRANSPLANT
     Dosage: UNK UNK, UNKNOWN FREQ.
     Route: 065

REACTIONS (23)
  - Vomiting [Unknown]
  - Weight decreased [Unknown]
  - Hepatic enzyme increased [Unknown]
  - Gastrointestinal injury [Unknown]
  - Nausea [Unknown]
  - Portal vein thrombosis [Unknown]
  - Choreoathetosis [Unknown]
  - Transaminases increased [Unknown]
  - Ascites [Unknown]
  - Platelet count decreased [Unknown]
  - Product use in unapproved indication [Unknown]
  - Pancreatic phlegmon [Unknown]
  - Obstruction gastric [Unknown]
  - Abdominal pain upper [Unknown]
  - Cholestasis [Unknown]
  - Post transplant lymphoproliferative disorder [Recovered/Resolved]
  - Intestine transplant rejection [Unknown]
  - Pancreatitis chronic [Unknown]
  - Pancreatitis acute [Unknown]
  - Gastrointestinal haemorrhage [Unknown]
  - Metabolic encephalopathy [Unknown]
  - Encephalopathy [Unknown]
  - Blood bilirubin increased [Unknown]
